FAERS Safety Report 8503471-4 (Version None)
Quarter: 2012Q3

REPORT INFORMATION
  Report Type: 
  Country: None (occurrence: None)
  Receive Date: 20120711
  Receipt Date: 20120709
  Transmission Date: 20120928
  Serious: Yes (Life-Threatening, Hospitalization)
  Sender: FDA-Public Use
  Company Number: US-GLAXOSMITHKLINE-A0983814A

PATIENT
  Age: 60 Year
  Sex: Female
  Weight: 80.5 kg

DRUGS (7)
  1. MAGIC MOUTHWASH [Concomitant]
     Route: 048
     Dates: start: 20120312
  2. LAPATINIB [Suspect]
     Indication: BREAST CANCER
     Dosage: 1250MG PER DAY
     Route: 048
     Dates: start: 20120312
  3. EVEROLIMUS [Suspect]
     Indication: BREAST CANCER
     Dosage: 5MG PER DAY
     Route: 048
     Dates: start: 20120312
  4. POTASSIUM CHLORIDE [Concomitant]
     Route: 048
     Dates: start: 20120312
  5. DECADRON [Concomitant]
     Route: 048
     Dates: start: 20120312
  6. MS CONTIN [Concomitant]
     Route: 048
     Dates: start: 20120312
  7. XANAX [Concomitant]
     Route: 048
     Dates: start: 20120312

REACTIONS (2)
  - PLEURAL EFFUSION [None]
  - DYSPNOEA [None]
